FAERS Safety Report 24193529 (Version 1)
Quarter: 2024Q3

REPORT INFORMATION
  Report Type: Spontaneous
  Country: GB (occurrence: GB)
  Receive Date: 20240809
  Receipt Date: 20240809
  Transmission Date: 20241017
  Serious: Yes (Other)
  Sender: RANBAXY
  Company Number: GB-MHRA-TPP7697934C7013898YC1721659344724

PATIENT
  Age: 73 Year
  Sex: Female
  Weight: 98 kg

DRUGS (16)
  1. CODEINE [Suspect]
     Active Substance: CODEINE
     Indication: Pain
     Dosage: 15 MILLIGRAM, TAKE ONE OR TWO TABLETS UP TO 4 TIMES/DAY FOR PAIN
     Route: 065
     Dates: start: 20240716
  2. DOXYCYCLINE [Concomitant]
     Active Substance: DOXYCYCLINE\DOXYCYCLINE HYCLATE
     Indication: Product used for unknown indication
     Dosage: 2 DOSAGE FORM, TAKE TWO CAPSULES TODAY AND THEN ONE CAPSULE DAILY
     Route: 065
     Dates: start: 20240716, end: 20240721
  3. DOXYCYCLINE [Concomitant]
     Active Substance: DOXYCYCLINE\DOXYCYCLINE HYCLATE
     Dosage: TAKE TWO CAPSULES TODAY AND THEN ONE CAPSULE DAILY
     Route: 065
     Dates: start: 20240716, end: 20240721
  4. BETAMETHASONE [Concomitant]
     Active Substance: BETAMETHASONE\BETAMETHASONE DIPROPIONATE
     Indication: Product used for unknown indication
     Dosage: 1 DOSAGE FORM, BID, APPLY TWICE DAILY
     Route: 065
     Dates: start: 20240718
  5. CLARITHROMYCIN [Concomitant]
     Active Substance: CLARITHROMYCIN
     Indication: Product used for unknown indication
     Dosage: 2 DOSAGE FORM, BID, TAKE 2 BD + TO OMIT SIMVASTATIN WHILE ON THE C...
     Route: 065
     Dates: start: 20240618, end: 20240625
  6. ALBUTEROL [Concomitant]
     Active Substance: ALBUTEROL
     Indication: Product used for unknown indication
     Dosage: INHALE 1 TO 2 DOSES UP TO FOUR TIMES DAILY AND ...
     Route: 055
     Dates: start: 20240701
  7. AEROCHAMBER PLUS [Concomitant]
     Indication: Product used for unknown indication
     Dosage: USE AS DIRECTED
     Route: 065
     Dates: start: 20240722
  8. PREGABALIN [Concomitant]
     Active Substance: PREGABALIN
     Indication: Product used for unknown indication
     Dosage: 1 DOSAGE FORM, BID, TAKE ONE TWICE DAILY
     Route: 065
     Dates: start: 20240722
  9. BENDROFLUMETHIAZIDE [Concomitant]
     Active Substance: BENDROFLUMETHIAZIDE
     Indication: Product used for unknown indication
     Dosage: 1 DOSAGE FORM, DAILY, TAKE ONE EACH MORNING **ANNUAL BLOOD TEST**
     Route: 065
     Dates: start: 20200727
  10. BECLOMETHASONE\FORMOTEROL [Concomitant]
     Active Substance: BECLOMETHASONE\FORMOTEROL
     Indication: Product used for unknown indication
     Dosage: 2 DOSAGE FORM, BID, TWO PUFFS TWICE DAILY
     Route: 065
     Dates: start: 20200727, end: 20240701
  11. LANSOPRAZOLE [Concomitant]
     Active Substance: LANSOPRAZOLE
     Indication: Product used for unknown indication
     Dosage: 1 DOSAGE FORM, TAKE ONE AS NEEDED. TAKE THE LEAST DOSE TO CONT...
     Route: 065
     Dates: start: 20200727
  12. LERCANIDIPINE [Concomitant]
     Active Substance: LERCANIDIPINE
     Indication: Product used for unknown indication
     Dosage: 1 DOSAGE FORM, DAILY, TAKE ONE DAILY **ANNUAL BLOOD TEST**
     Route: 065
     Dates: start: 20200727
  13. SIMVASTATIN [Concomitant]
     Active Substance: SIMVASTATIN
     Indication: Product used for unknown indication
     Dosage: 1 DOSAGE FORM, Q1H, TAKE ONE AT NIGHT
     Route: 065
     Dates: start: 20200727
  14. CARBOCYSTEINE [Concomitant]
     Active Substance: CARBOCYSTEINE
     Indication: Product used for unknown indication
     Dosage: 2 DOSAGE FORM, Q2H, USE 2 TWO TIMES DAILY
     Route: 065
     Dates: start: 20220923
  15. RAMIPRIL [Concomitant]
     Active Substance: RAMIPRIL
     Indication: Product used for unknown indication
     Dosage: 1 DOSAGE FORM, DAILY, TAKE ONE DAILY
     Route: 065
     Dates: start: 20230925
  16. BECLOMETHASONE DIPROPIONATE\FORMOTEROL FUMARATE\GLYCOPYRROLATE [Concomitant]
     Active Substance: BECLOMETHASONE DIPROPIONATE\FORMOTEROL FUMARATE\GLYCOPYRROLATE
     Indication: Product used for unknown indication
     Dosage: 2 DOSAGE FORM, BID TWO PUFFS TWICE DAILY
     Route: 065
     Dates: start: 20240701

REACTIONS (1)
  - Lip swelling [Recovered/Resolved]
